FAERS Safety Report 14912474 (Version 4)
Quarter: 2019Q3

REPORT INFORMATION
  Report Type: Report from Study
  Country: NL (occurrence: NL)
  Receive Date: 20180518
  Receipt Date: 20190709
  Transmission Date: 20191004
  Serious: Yes (Death, Other)
  Sender: FDA-Public Use
  Company Number: NL-CELGENEUS-NLD-20180502937

PATIENT
  Age: 70 Year
  Sex: Male

DRUGS (8)
  1. LENALIDOMIDE [Suspect]
     Active Substance: LENALIDOMIDE
     Dosage: MAINTENANCE
     Route: 048
     Dates: start: 20141112
  2. PREDNISONE. [Suspect]
     Active Substance: PREDNISONE
     Indication: PLASMA CELL MYELOMA
     Route: 065
     Dates: start: 20120703, end: 20121221
  3. LENALIDOMIDE [Suspect]
     Active Substance: LENALIDOMIDE
     Indication: PLASMA CELL MYELOMA
     Route: 048
     Dates: start: 20120703, end: 20130212
  4. LENALIDOMIDE [Suspect]
     Active Substance: LENALIDOMIDE
     Dosage: MAINTENANCE
     Route: 048
     Dates: start: 20130312, end: 20140105
  5. MELPHALAN. [Suspect]
     Active Substance: MELPHALAN
     Route: 065
     Dates: end: 20130212
  6. MELPHALAN. [Suspect]
     Active Substance: MELPHALAN
     Indication: PLASMA CELL MYELOMA
     Route: 065
     Dates: start: 20120703, end: 20121221
  7. PREDNISONE. [Suspect]
     Active Substance: PREDNISONE
     Route: 065
     Dates: end: 20130312
  8. THALIDOMIDE CELGENE [Suspect]
     Active Substance: THALIDOMIDE
     Indication: PLASMA CELL MYELOMA
     Route: 065

REACTIONS (1)
  - Chronic myelomonocytic leukaemia [Fatal]

NARRATIVE: CASE EVENT DATE: 20170712
